FAERS Safety Report 8392760 (Version 2)
Quarter: 2012Q4

REPORT INFORMATION
  Report Type: 
  Country: BR (occurrence: BR)
  Receive Date: 20120207
  Receipt Date: 20121003
  Transmission Date: 20130627
  Serious: Yes (Other)
  Sender: FDA-Public Use
  Company Number: BR-BRISTOL-MYERS SQUIBB COMPANY-16376444

PATIENT
  Sex: Female

DRUGS (2)
  1. APROZIDE [Suspect]
     Dosage: 1DF=300/12.5 tab
  2. INSULIN [Concomitant]

REACTIONS (1)
  - Glaucoma [Unknown]
